FAERS Safety Report 9109625 (Version 1)
Quarter: 2013Q1

REPORT INFORMATION
  Report Type: Spontaneous
  Country: US (occurrence: US)
  Receive Date: 20130222
  Receipt Date: 20130222
  Transmission Date: 20140127
  Serious: No
  Sender: FDA-Public Use
  Company Number: US-TEVA-354241USA

PATIENT
  Sex: Male
  Weight: 85.35 kg

DRUGS (7)
  1. TREANDA [Suspect]
     Indication: CHRONIC LYMPHOCYTIC LEUKAEMIA
     Dosage: 4 CYCLES COMPLETED
     Route: 042
  2. TYLENOL [Concomitant]
     Indication: PREMEDICATION
     Route: 048
  3. BENADRYL [Concomitant]
     Indication: PREMEDICATION
     Route: 042
  4. NEXIUM [Concomitant]
     Dosage: 40 MILLIGRAM DAILY;
     Route: 048
  5. COVARYX [Concomitant]
     Dosage: 800 MILLIGRAM DAILY; MON, WED. ADN FRI.
     Route: 048
  6. RITUXAN [Concomitant]
     Indication: CHRONIC LYMPHOCYTIC LEUKAEMIA
     Dosage: 4 CYCLES COMPLETED
     Route: 042
  7. DECADRON [Concomitant]
     Indication: PREMEDICATION

REACTIONS (1)
  - Phlebitis [Unknown]
